FAERS Safety Report 13629720 (Version 3)
Quarter: 2017Q2

REPORT INFORMATION
  Report Type: Report from Study
  Country: CN (occurrence: CN)
  Receive Date: 20170608
  Receipt Date: 20170620
  Transmission Date: 20170830
  Serious: Yes (Hospitalization, Other)
  Sender: FDA-Public Use
  Company Number: CN-ASTELLAS-2017US022081

PATIENT
  Sex: Female

DRUGS (1)
  1. ERLOTINIB [Suspect]
     Active Substance: ERLOTINIB
     Indication: NON-SMALL CELL LUNG CANCER
     Route: 048
     Dates: start: 20170109

REACTIONS (7)
  - Discomfort [Unknown]
  - Cardiac disorder [Unknown]
  - Chest discomfort [Unknown]
  - Blood pressure increased [Unknown]
  - Asphyxia [Unknown]
  - Movement disorder [Unknown]
  - Dyspnoea [Unknown]
